FAERS Safety Report 18473184 (Version 1)
Quarter: 2020Q4

REPORT INFORMATION
  Report Type: Spontaneous
  Country: NL (occurrence: NL)
  Receive Date: 20201106
  Receipt Date: 20201106
  Transmission Date: 20210114
  Serious: Yes (Life-Threatening)
  Sender: FDA-Public Use
  Company Number: NL-JNJFOC-20201101736

PATIENT
  Age: 57 Year
  Sex: Female
  Weight: 79.1 kg

DRUGS (10)
  1. MACROGOL [Concomitant]
     Active Substance: POLYETHYLENE GLYCOLS
  2. TOPAMAX [Suspect]
     Active Substance: TOPIRAMATE
     Indication: BIPOLAR DISORDER
     Dosage: 2X PER DAY 3 TABLET
     Route: 048
  3. FERROFUMARAAT [Concomitant]
     Active Substance: FERROUS FUMARATE
  4. CLONIDINE. [Interacting]
     Active Substance: CLONIDINE
     Indication: HYPERHIDROSIS
     Dosage: 2 DD 2 TABLET
     Route: 065
     Dates: end: 20200813
  5. TOPAMAX [Suspect]
     Active Substance: TOPIRAMATE
     Indication: SCHIZOAFFECTIVE DISORDER
  6. OMEPRAZOLE. [Concomitant]
     Active Substance: OMEPRAZOLE
     Dosage: MAAGSAPRESISTENTE CAPSULE
  7. BUPRENORFINE MYLAN [Concomitant]
     Dosage: PLEISTER
  8. QUETIAPINE. [Concomitant]
     Active Substance: QUETIAPINE
     Dosage: FILMOMHULDE TABLET
  9. SALBUTAMOL [Concomitant]
     Active Substance: ALBUTEROL
     Dosage: AEROSOL
  10. TEMAZEPAM. [Concomitant]
     Active Substance: TEMAZEPAM

REACTIONS (4)
  - Off label use [Unknown]
  - Hyperthermia [Recovering/Resolving]
  - Potentiating drug interaction [Recovering/Resolving]
  - Product use in unapproved indication [Unknown]

NARRATIVE: CASE EVENT DATE: 20200813
